FAERS Safety Report 18070063 (Version 1)
Quarter: 2020Q3

REPORT INFORMATION
  Report Type: Other
  Country: US (occurrence: US)
  Receive Date: 20200727
  Receipt Date: 20200727
  Transmission Date: 20201103
  Serious: Yes (Other)
  Sender: FDA-Public Use
  Company Number: US-ROCHE-2644439

PATIENT
  Age: 84 Year
  Sex: Male

DRUGS (7)
  1. FLUDROCORTISONE [Concomitant]
     Active Substance: FLUDROCORTISONE
     Route: 048
     Dates: start: 20200519
  2. FLOMAX [Concomitant]
     Active Substance: TAMSULOSIN HYDROCHLORIDE
     Route: 048
     Dates: start: 20200220
  3. ALECENSA [Suspect]
     Active Substance: ALECTINIB HYDROCHLORIDE
     Indication: METASTASIS
     Dosage: TAKE 3 CAPSULES BY MOUTH 2 (TWO) TIMES A DAY
     Route: 048
     Dates: start: 20200323
  4. CASODEX [Concomitant]
     Active Substance: BICALUTAMIDE
     Route: 048
     Dates: start: 20200121
  5. XARELTO [Concomitant]
     Active Substance: RIVAROXABAN
     Dosage: TAKE 1 TABLET BY MOUTH DAILY WITH DINNER
     Route: 048
     Dates: start: 20190724
  6. ALECENSA [Suspect]
     Active Substance: ALECTINIB HYDROCHLORIDE
     Indication: LUNG NEOPLASM MALIGNANT
     Dosage: TAKE 3 CAPSULE(S) BY MOUTH TWICE A DAY
     Route: 048
     Dates: start: 20170801
  7. ZYLOPRIM [Concomitant]
     Active Substance: ALLOPURINOL
     Dosage: TAKE 100 MG  BY MOUTH TWICE A DAY
     Route: 048
     Dates: start: 20160322

REACTIONS (1)
  - Prostate cancer [Unknown]

NARRATIVE: CASE EVENT DATE: 20200227
